FAERS Safety Report 26206603 (Version 1)
Quarter: 2025Q4

REPORT INFORMATION
  Report Type: Spontaneous
  Country: JO (occurrence: JO)
  Receive Date: 20251229
  Receipt Date: 20251229
  Transmission Date: 20260118
  Serious: Yes (Other)
  Sender: Onesource Specialty Pharma
  Company Number: JO-STRIDES ARCOLAB LIMITED-2025OS001551

PATIENT
  Age: 14 Year
  Sex: Female

DRUGS (9)
  1. CYCLOSPORINE [Suspect]
     Active Substance: CYCLOSPORINE
     Indication: Prophylaxis against graft versus host disease
     Dosage: UNK
     Route: 065
  2. CYCLOSPORINE [Suspect]
     Active Substance: CYCLOSPORINE
     Indication: Adenosine deaminase 2 deficiency
     Dosage: UNK
     Route: 065
  3. SIROLIMUS [Suspect]
     Active Substance: SIROLIMUS
     Indication: Adenosine deaminase 2 deficiency
     Dosage: UNK
     Route: 065
  4. SIROLIMUS [Suspect]
     Active Substance: SIROLIMUS
     Dosage: UNK
     Route: 065
  5. TREOSULFAN [Suspect]
     Active Substance: TREOSULFAN
     Indication: Bone marrow conditioning regimen
     Dosage: 42 MILLIGRAM/SQ. METER
     Route: 065
  6. THIOTEPA [Suspect]
     Active Substance: THIOTEPA
     Indication: Bone marrow conditioning regimen
     Dosage: 10 MILLIGRAM/KILOGRAM
     Route: 065
  7. FLUDARABINE [Suspect]
     Active Substance: FLUDARABINE PHOSPHATE
     Indication: Bone marrow conditioning regimen
     Dosage: 160 MILLIGRAM/SQ. METER
     Route: 065
  8. RITUXIMAB [Suspect]
     Active Substance: RITUXIMAB
     Indication: Bone marrow conditioning regimen
     Dosage: 200 MILLIGRAM/SQ. METER
     Route: 065
  9. GRAFALON [Concomitant]
     Active Substance: LAPINE T-LYMPHOCYTE IMMUNE GLOBULIN
     Indication: Bone marrow conditioning regimen
     Dosage: 10 MILLIGRAM/KILOGRAM
     Route: 065

REACTIONS (3)
  - Deafness neurosensory [Unknown]
  - Therapy non-responder [Unknown]
  - Off label use [Unknown]
